FAERS Safety Report 16668000 (Version 1)
Quarter: 2019Q3

REPORT INFORMATION
  Report Type: Spontaneous
  Country: US (occurrence: US)
  Receive Date: 20190805
  Receipt Date: 20190805
  Transmission Date: 20191004
  Serious: No
  Sender: FDA-Public Use
  Company Number: US-MYLANLABS-2019M1068902

PATIENT
  Sex: Female

DRUGS (1)
  1. WIXELA INHUB [Suspect]
     Active Substance: FLUTICASONE PROPIONATE\SALMETEROL XINAFOATE
     Indication: PRODUCT USED FOR UNKNOWN INDICATION
     Dosage: UNK
     Route: 055

REACTIONS (8)
  - Product taste abnormal [Unknown]
  - Product quality issue [Unknown]
  - Product use issue [Unknown]
  - Oxygen saturation decreased [Unknown]
  - Chest discomfort [Unknown]
  - Lethargy [Unknown]
  - Cough [Unknown]
  - Drug ineffective [Unknown]
